FAERS Safety Report 7735220-1 (Version None)
Quarter: 2011Q3

REPORT INFORMATION
  Report Type: 
  Country: None (occurrence: None)
  Receive Date: 20110907
  Receipt Date: 20110829
  Transmission Date: 20111222
  Serious: Yes (Hospitalization)
  Sender: FDA-Public Use
  Company Number: US-ASTRAZENECA-2011SE49661

PATIENT
  Age: 62 Year
  Sex: Male

DRUGS (3)
  1. NEXIUM [Suspect]
     Route: 048
  2. FLAGYL [Concomitant]
  3. LEVAQUIN [Concomitant]

REACTIONS (6)
  - CONDITION AGGRAVATED [None]
  - MALAISE [None]
  - DISEASE RECURRENCE [None]
  - DIVERTICULITIS [None]
  - PAIN [None]
  - DRUG DOSE OMISSION [None]
